FAERS Safety Report 5464948-1 (Version None)
Quarter: 2007Q3

REPORT INFORMATION
  Report Type: 
  Country: None (occurrence: None)
  Receive Date: 20070820
  Receipt Date: 20070618
  Transmission Date: 20080115
  Serious: No
  Sender: FDA-Public Use
  Company Number: TPA2007A01324

PATIENT
  Age: 61 Year
  Sex: Female
  Weight: 57.1532 kg

DRUGS (2)
  1. ROZEREM [Suspect]
     Indication: INSOMNIA
     Dosage: 8 MG, HS, PER ORAL
     Route: 048
     Dates: start: 20070613, end: 20070614
  2. PLAVIX [Concomitant]

REACTIONS (3)
  - INITIAL INSOMNIA [None]
  - IRRITABILITY [None]
  - THROAT TIGHTNESS [None]
